FAERS Safety Report 21604204 (Version 1)
Quarter: 2022Q4

REPORT INFORMATION
  Report Type: Spontaneous
  Country: US (occurrence: US)
  Receive Date: 20221116
  Receipt Date: 20221116
  Transmission Date: 20230113
  Serious: No
  Sender: FDA-Public Use
  Company Number: US-PERRIGO-22US006311

PATIENT
  Age: 58 Year
  Sex: Female
  Weight: 86.168 kg

DRUGS (1)
  1. POLYETHYLENE GLYCOL 3350 [Suspect]
     Active Substance: POLYETHYLENE GLYCOL 3350
     Indication: Bowel preparation
     Dosage: 17 G, SINGLE
     Route: 048
     Dates: start: 20220424, end: 20220424

REACTIONS (9)
  - Swelling face [Recovering/Resolving]
  - Oral pain [Not Recovered/Not Resolved]
  - Hypoaesthesia oral [Not Recovered/Not Resolved]
  - Feeling cold [Recovered/Resolved]
  - Toothache [Not Recovered/Not Resolved]
  - Stomatitis [Not Recovered/Not Resolved]
  - Eye swelling [Recovering/Resolving]
  - Hypersensitivity [Not Recovered/Not Resolved]
  - Drug ineffective for unapproved indication [Unknown]

NARRATIVE: CASE EVENT DATE: 20220424
